FAERS Safety Report 7177016 (Version 7)
Quarter: 2012Q4

REPORT INFORMATION
  Report Type: 
  Country: CA (occurrence: CA)
  Receive Date: 20091113
  Receipt Date: 20121104
  Transmission Date: 20130627
  Serious: Yes (Death, Hospitalization, Other)
  Sender: FDA-Public Use
  Company Number: PHHY2009CA19689

PATIENT
  Sex: Male

DRUGS (1)
  1. SANDOSTATIN LAR [Suspect]
     Indication: CARCINOID TUMOUR
     Dosage: 30 mg, QMO
     Route: 030
     Dates: start: 20050422

REACTIONS (18)
  - Death [Fatal]
  - Loss of consciousness [Unknown]
  - Hypotension [Unknown]
  - Influenza [Unknown]
  - Cough [Recovering/Resolving]
  - Dehydration [Unknown]
  - Asthenia [Unknown]
  - Fall [Unknown]
  - Upper limb fracture [Unknown]
  - Blood glucose decreased [Unknown]
  - Heart rate decreased [Unknown]
  - Blood pressure systolic increased [Unknown]
  - Arthralgia [Unknown]
  - Flushing [Unknown]
  - Pallor [Unknown]
  - Decreased appetite [Unknown]
  - Fatigue [Unknown]
  - Blood glucose increased [Unknown]
